FAERS Safety Report 5887012-6 (Version None)
Quarter: 2008Q3

REPORT INFORMATION
  Report Type: 
  Country: None (occurrence: None)
  Receive Date: 20080917
  Receipt Date: 20080903
  Transmission Date: 20090109
  Serious: Yes (Hospitalization)
  Sender: FDA-Public Use
  Company Number: US-AMGEN-US304175

PATIENT
  Age: 66 Year
  Sex: Male
  Weight: 76.2 kg

DRUGS (9)
  1. PANITUMUMAB [Suspect]
     Indication: SQUAMOUS CELL CARCINOMA
     Route: 042
     Dates: start: 20080715, end: 20080812
  2. OXALIPLATIN [Concomitant]
     Route: 042
     Dates: start: 20080715
  3. CAPECITABINE [Concomitant]
     Route: 048
     Dates: start: 20080715
  4. RADIATION THERAPY [Concomitant]
  5. ASPIRIN [Concomitant]
     Route: 048
  6. FISH OIL [Concomitant]
     Route: 048
  7. ZOFRAN [Concomitant]
     Route: 048
  8. DEXAMETHASONE [Concomitant]
     Route: 048
  9. COMPAZINE [Concomitant]
     Route: 048

REACTIONS (2)
  - ATRIAL FIBRILLATION [None]
  - HYPOVOLAEMIA [None]
